FAERS Safety Report 9097139 (Version 2)
Quarter: 2013Q1

REPORT INFORMATION
  Report Type: Spontaneous
  Country: US (occurrence: US)
  Receive Date: 20130212
  Receipt Date: 20130329
  Transmission Date: 20140127
  Serious: Yes (Life-Threatening, Hospitalization)
  Sender: FDA-Public Use
  Company Number: US-MERCK-1302USA003466

PATIENT
  Age: 30 Year
  Sex: Male

DRUGS (1)
  1. SAPHRIS [Suspect]
     Indication: SCHIZOPHRENIA
     Dosage: UNK
     Route: 048

REACTIONS (2)
  - Self injurious behaviour [Unknown]
  - Delusion [Unknown]
